FAERS Safety Report 23946011 (Version 1)
Quarter: 2024Q2

REPORT INFORMATION
  Report Type: Spontaneous
  Country: CA (occurrence: CA)
  Receive Date: 20240606
  Receipt Date: 20240606
  Transmission Date: 20240716
  Serious: Yes (Hospitalization, Other)
  Sender: FDA-Public Use
  Company Number: None

PATIENT

DRUGS (9)
  1. ONCASPAR [Suspect]
     Active Substance: PEGASPARGASE
     Indication: T-cell type acute leukaemia
     Dosage: 1500 IU, 1X/2WKS
     Route: 042
  2. DASATINIB [Concomitant]
     Active Substance: DASATINIB
     Indication: Product used for unknown indication
     Dosage: UNK
     Route: 065
  3. DEXAMETHASONE [Concomitant]
     Active Substance: DEXAMETHASONE
     Indication: Product used for unknown indication
     Dosage: UNK
     Route: 065
  4. DILAUDID [Concomitant]
     Active Substance: HYDROMORPHONE HYDROCHLORIDE
     Indication: Product used for unknown indication
     Dosage: UNK
     Route: 065
  5. LEVETIRACETAM [Concomitant]
     Active Substance: LEVETIRACETAM
     Indication: Product used for unknown indication
     Dosage: UNK
     Route: 065
  6. ONDANSETRON [Concomitant]
     Active Substance: ONDANSETRON
     Indication: Product used for unknown indication
     Dosage: UNK
     Route: 065
  7. VENCLEXTA [Concomitant]
     Active Substance: VENETOCLAX
     Indication: Product used for unknown indication
     Dosage: UNK
     Route: 048
  8. VINCRISTINE SULFATE [Concomitant]
     Active Substance: VINCRISTINE SULFATE
     Indication: Product used for unknown indication
     Dosage: UNK
     Route: 065
  9. VORICONAZOLE [Concomitant]
     Active Substance: VORICONAZOLE
     Indication: Product used for unknown indication
     Dosage: UNK
     Route: 065

REACTIONS (3)
  - Encephalopathy [Recovering/Resolving]
  - Hyperammonaemia [Recovering/Resolving]
  - Lethargy [Recovering/Resolving]
